FAERS Safety Report 10361802 (Version 1)
Quarter: 2014Q1

REPORT INFORMATION
  Report Type: Spontaneous
  Country: US (occurrence: None)
  Receive Date: 20140306
  Receipt Date: 20140306
  Transmission Date: 20141002
  Serious: Yes (Other)
  Sender: FDA-Public Use
  Company Number: 163-21880-13080237

PATIENT
  Age: 72 Year
  Sex: Female
  Weight: 95.26 kg

DRUGS (25)
  1. REVLIMID [Suspect]
     Indication: PLASMA CELL MYELOMA
     Dosage: 25 MG, 21 IN 28 D, PO
     Route: 048
     Dates: start: 20130507, end: 20130509
  2. PREMARIN (ESTROGENS CONJUGATED) [Concomitant]
  3. PREDNISONE (PREDNISONE) (TABLETS) [Concomitant]
  4. PRAVASTATIN SODIUM) (PRAVASTATIN SODIUM) [Concomitant]
  5. ACYCLOVIR (ACICLOVIR) (TABLETS) [Concomitant]
  6. FLONASE (FLUTICASONE PROPIONATE) (SPRAY (NOT INHALATION) [Concomitant]
  7. MAGNESIUM GLUCONATE (MAGNESIUM GLUCONATE) [Concomitant]
  8. VITAMIN D (ERGOCALCIFEROL) [Concomitant]
  9. LEVOXYL (LEVOTHYROXINE SODIUM) (TABLETS) [Concomitant]
  10. TRIAMTERENE-HCTZ (DYAZIDE) [Concomitant]
  11. ALLERGY MEDICINE (OTHER ANTIALLERGICS) [Concomitant]
  12. CENTRUM (CENTRUM) [Concomitant]
  13. CALCIUM (CALCIUM) [Concomitant]
  14. ENBREL (ETANERCEPT) [Concomitant]
  15. CYCLOPHOSPHAMIDE (CYCLOPHOSPHAMIDE) [Concomitant]
  16. BORTEZOMIB (BORTEZOMIB) [Concomitant]
  17. SODIUM CHLORIDE (SODIUM CHLORIDE) [Concomitant]
  18. SOLU-MEDROL (METHYLPREDNISOLONE SODIUM SUCCINATE) [Concomitant]
  19. ZOLEDRONIC ACID (ZOLEDRONIC ACID) [Concomitant]
  20. ZOVIRAX (ACICLOVIR) [Concomitant]
  21. DEXAMETHASONE (DEXAMETHASONE) [Concomitant]
  22. HYDROCHLOROTHIAZIDE (HYDROCHLOROTHIAZIDE) [Concomitant]
  23. MOTRIN IB (IBUPROFEN) [Concomitant]
  24. MULTIVITAMINS (MULTIVITAMINS) [Concomitant]
  25. OMEPRAZOLE (OMEPRAZOLE) [Concomitant]

REACTIONS (16)
  - Hypersensitivity [None]
  - Ear pain [None]
  - Eye irritation [None]
  - Burning sensation mucosal [None]
  - Pruritus generalised [None]
  - Sinusitis [None]
  - Pain in extremity [None]
  - Headache [None]
  - Cough [None]
  - Hypoaesthesia [None]
  - Abdominal pain upper [None]
  - Oedema peripheral [None]
  - Asthenia [None]
  - Dizziness [None]
  - Dyspnoea [None]
  - Fatigue [None]
